FAERS Safety Report 6162551-1 (Version None)
Quarter: 2009Q2

REPORT INFORMATION
  Report Type: 
  Country: None (occurrence: None)
  Receive Date: 20090421
  Receipt Date: 20090305
  Transmission Date: 20091009
  Serious: Yes (Death, Other)
  Sender: FDA-Public Use
  Company Number: US-PFIZER INC-2009165127

PATIENT
  Sex: Male

DRUGS (4)
  1. TIKOSYN [Suspect]
     Indication: ATRIAL FIBRILLATION
     Dosage: 125 UG, 1X/DAY
     Route: 048
     Dates: start: 20060829
  2. DIGOXIN [Suspect]
  3. POTASSIUM CHLORIDE [Suspect]
  4. LASIX [Suspect]

REACTIONS (2)
  - DEATH [None]
  - EJECTION FRACTION DECREASED [None]
